FAERS Safety Report 8345186-1 (Version None)
Quarter: 2012Q2

REPORT INFORMATION
  Report Type: 
  Country: None (occurrence: None)
  Receive Date: 20120508
  Receipt Date: 20120501
  Transmission Date: 20120825
  Serious: Yes (Life-Threatening, Hospitalization)
  Sender: FDA-Public Use
  Company Number: US-BAYER-2012-020067

PATIENT
  Age: 43 Year
  Sex: Female

DRUGS (9)
  1. YASMIN [Suspect]
  2. NORTRIPTYLINE HCL [Concomitant]
     Dosage: UNK
     Dates: start: 20110712
  3. SYNTHROID [Concomitant]
     Dosage: 125 MCG/24HR, UNK
     Dates: start: 20110712
  4. TOPAMAX [Concomitant]
     Dosage: 200 MG, UNK
     Dates: start: 20110712
  5. LEXAPRO [Concomitant]
     Dosage: 20 MG, QD
     Dates: start: 20110712
  6. YAZ [Suspect]
     Dosage: UNK
     Dates: start: 20100101, end: 20110715
  7. DROSPIRENONE AND ETHINYL ESTRADIOL [Suspect]
  8. LEVOXYL [Concomitant]
     Dosage: 0.112 MG, QD
     Dates: start: 20110712
  9. ABILIFY [Concomitant]
     Dosage: 7.5 MG, UNK
     Dates: end: 20110715

REACTIONS (7)
  - CEREBELLAR EMBOLISM [None]
  - ANHEDONIA [None]
  - INJURY [None]
  - PAIN [None]
  - EMBOLISM VENOUS [None]
  - GENERAL PHYSICAL HEALTH DETERIORATION [None]
  - ANXIETY [None]
